FAERS Safety Report 8920219 (Version 1)
Quarter: 2012Q4

REPORT INFORMATION
  Report Type: 
  Country: US (occurrence: US)
  Receive Date: 20121121
  Receipt Date: 20121121
  Transmission Date: 20130627
  Serious: No
  Sender: FDA-Public Use
  Company Number: US-TEVA-371202USA

PATIENT
  Sex: Female

DRUGS (2)
  1. PROAIR HFA [Suspect]
     Indication: DYSPNOEA
     Dates: start: 201209
  2. SYMBICORT [Suspect]

REACTIONS (1)
  - Rash pruritic [Unknown]
